FAERS Safety Report 10069224 (Version 1)
Quarter: 2014Q2

REPORT INFORMATION
  Report Type: Spontaneous
  Country: US (occurrence: US)
  Receive Date: 20140409
  Receipt Date: 20140409
  Transmission Date: 20141212
  Serious: No
  Sender: FDA-Public Use
  Company Number: US-ASTELLAS-2013US004388

PATIENT
  Age: 52 Year
  Sex: Female
  Weight: 57 kg

DRUGS (1)
  1. PROTOPIC [Suspect]
     Indication: SENSITISATION
     Dosage: UNK
     Route: 061
     Dates: start: 20130411, end: 20130412

REACTIONS (2)
  - Off label use [Unknown]
  - Skin burning sensation [Recovering/Resolving]
